FAERS Safety Report 14111044 (Version 1)
Quarter: 2017Q4

REPORT INFORMATION
  Report Type: Report from Study
  Country: CO (occurrence: CO)
  Receive Date: 20171020
  Receipt Date: 20171020
  Transmission Date: 20180321
  Serious: Yes (Other)
  Sender: FDA-Public Use
  Company Number: CO-REGENERON PHARMACEUTICALS, INC.-2017-24835

PATIENT

DRUGS (6)
  1. EYLEA [Suspect]
     Active Substance: AFLIBERCEPT
     Dosage: 2 MG, UNK
     Route: 031
     Dates: start: 20160819, end: 20160819
  2. EYLEA [Suspect]
     Active Substance: AFLIBERCEPT
     Dosage: 2 MG, UNK
     Route: 031
     Dates: start: 20151115, end: 20151115
  3. EYLEA [Suspect]
     Active Substance: AFLIBERCEPT
     Indication: DIABETIC RETINAL OEDEMA
     Dosage: 2 MG, UNK
     Route: 031
     Dates: start: 20150818, end: 20150818
  4. EYLEA [Suspect]
     Active Substance: AFLIBERCEPT
     Dosage: 2 MG, UNK
     Route: 031
     Dates: start: 20160413, end: 20160413
  5. EYLEA [Suspect]
     Active Substance: AFLIBERCEPT
     Dosage: 2 MG, UNK
     Route: 031
     Dates: start: 20161123, end: 20161123
  6. EYLEA [Suspect]
     Active Substance: AFLIBERCEPT
     Dosage: 2 MG, UNK
     Route: 031
     Dates: start: 20160519, end: 20160519

REACTIONS (2)
  - Inappropriate schedule of drug administration [Not Recovered/Not Resolved]
  - Cataract operation [Unknown]

NARRATIVE: CASE EVENT DATE: 20171010
